FAERS Safety Report 21519298 (Version 1)
Quarter: 2022Q4

REPORT INFORMATION
  Report Type: Spontaneous
  Country: US (occurrence: None)
  Receive Date: 20221027
  Receipt Date: 20221027
  Transmission Date: 20230112
  Serious: No
  Sender: FDA-Public Use
  Company Number: None

PATIENT
  Age: 80 Year
  Sex: Female
  Weight: 63.5 kg

DRUGS (17)
  1. RHOPRESSA [Suspect]
     Active Substance: NETARSUDIL MESYLATE
     Indication: Glaucoma
     Dosage: ?1 DROP/EACH EYE AT BEDTIME   D POP IN EYES
     Route: 031
     Dates: start: 20220903, end: 20221007
  2. AMLODIPINE [Concomitant]
     Active Substance: AMLODIPINE BESYLATE
  3. VALSARTAN [Concomitant]
     Active Substance: VALSARTAN
  4. ALPHAGAN P [Concomitant]
     Active Substance: BRIMONIDINE TARTRATE
  5. HUMALOG [Concomitant]
     Active Substance: INSULIN LISPRO
  6. ORPHENADRINE [Concomitant]
     Active Substance: ORPHENADRINE
  7. XARELTO [Concomitant]
     Active Substance: RIVAROXABAN
  8. PILOCARPINE [Concomitant]
     Active Substance: PILOCARPINE
  9. ZOLPIDEM [Concomitant]
     Active Substance: ZOLPIDEM TARTRATE
  10. PRANDIN [Concomitant]
     Active Substance: REPAGLINIDE
  11. METOPROLOL [Concomitant]
     Active Substance: METOPROLOL
  12. BUMETANIDE [Concomitant]
     Active Substance: BUMETANIDE
  13. VITAMIN D NOS [Concomitant]
     Active Substance: VITAMIN D NOS
  14. VITAMIN C [Concomitant]
     Active Substance: ASCORBIC ACID
  15. FISH OIL [Concomitant]
     Active Substance: FISH OIL
  16. REFRESH CLASSIC [Concomitant]
     Active Substance: POLYVINYL ALCOHOL\POVIDONE
  17. PREVISIOIN AREDS 2 [Concomitant]

REACTIONS (5)
  - Erythema of eyelid [None]
  - Swelling of eyelid [None]
  - Eye pruritus [None]
  - Vision blurred [None]
  - Eye haemorrhage [None]

NARRATIVE: CASE EVENT DATE: 20220910
